FAERS Safety Report 5371711-9 (Version None)
Quarter: 2007Q2

REPORT INFORMATION
  Report Type: 
  Country: None (occurrence: None)
  Receive Date: 20070619
  Receipt Date: 20070329
  Transmission Date: 20071010
  Serious: No
  Sender: FDA-Public Use
  Company Number: 2007US000431

PATIENT
  Age: 71 Year
  Sex: Female

DRUGS (13)
  1. VESICARE [Suspect]
     Indication: BLADDER DISORDER
     Dosage: 5 MG, UID/QD, ORAL
     Route: 048
     Dates: start: 20070219
  2. METOPROLOL SUCCINATE [Concomitant]
  3. LISINOPRIL [Concomitant]
  4. LOVASTATIN [Concomitant]
  5. GEMFIBROZIL [Concomitant]
  6. FOSAMAX [Concomitant]
  7. CYANOCOBALAMIN [Concomitant]
  8. CALCIUM CARBONATE [Concomitant]
  9. VITAMIN D [Concomitant]
  10. PSYLLIUM (PLANTAGO AFRA) [Concomitant]
  11. ASPIRIN [Concomitant]
  12. MULTIVITAMIN [Concomitant]
  13. ASCORBIC ACID [Concomitant]

REACTIONS (3)
  - DIZZINESS [None]
  - DRY EYE [None]
  - VISION BLURRED [None]
